FAERS Safety Report 25343308 (Version 3)
Quarter: 2025Q2

REPORT INFORMATION
  Report Type: Spontaneous
  Country: DE (occurrence: None)
  Receive Date: 20250521
  Receipt Date: 20250605
  Transmission Date: 20250716
  Serious: Yes (Death, Hospitalization, Other)
  Sender: INCYTE
  Company Number: DE-DialogSolutions-SAAVPROD-PI767186-C1

PATIENT
  Age: 65 Year

DRUGS (11)
  1. RUXOLITINIB [Suspect]
     Active Substance: RUXOLITINIB
     Indication: Allogenic stem cell transplantation
     Route: 065
  2. VORICONAZOLE [Suspect]
     Active Substance: VORICONAZOLE
     Indication: Fusarium infection
  3. VORICONAZOLE [Suspect]
     Active Substance: VORICONAZOLE
  4. VORICONAZOLE [Suspect]
     Active Substance: VORICONAZOLE
  5. FLUDARABINE PHOSPHATE [Suspect]
     Active Substance: FLUDARABINE PHOSPHATE
     Indication: Allogenic stem cell transplantation
     Route: 065
  6. TREOSULFAN [Suspect]
     Active Substance: TREOSULFAN
     Indication: Allogenic stem cell transplantation
     Route: 065
  7. LAPINE T-LYMPHOCYTE IMMUNE GLOBULIN [Suspect]
     Active Substance: LAPINE T-LYMPHOCYTE IMMUNE GLOBULIN
     Indication: Allogenic stem cell transplantation
     Route: 065
  8. AMPHOTERICIN B [Suspect]
     Active Substance: AMPHOTERICIN B
     Indication: Fusarium infection
  9. AMPHOTERICIN B [Suspect]
     Active Substance: AMPHOTERICIN B
  10. POSACONAZOLE [Concomitant]
     Active Substance: POSACONAZOLE
     Indication: Antifungal prophylaxis
     Route: 065
  11. POSACONAZOLE [Concomitant]
     Active Substance: POSACONAZOLE
     Route: 065

REACTIONS (13)
  - Abdominal pain [Fatal]
  - Fusarium infection [Fatal]
  - Erysipelas [Fatal]
  - Lymphopenia [Fatal]
  - Multiple organ dysfunction syndrome [Fatal]
  - Hepatic lesion [Fatal]
  - Pleural effusion [Fatal]
  - Off label use [Fatal]
  - Renal impairment [Fatal]
  - Pseudomonas infection [Fatal]
  - Staphylococcal infection [Fatal]
  - Skin lesion [Fatal]
  - Drug ineffective [Fatal]
